FAERS Safety Report 9643330 (Version 1)
Quarter: 2013Q4

REPORT INFORMATION
  Report Type: Spontaneous
  Country: US (occurrence: None)
  Receive Date: 20131022
  Receipt Date: 20131022
  Transmission Date: 20140711
  Serious: Yes (Other)
  Sender: FDA-Public Use
  Company Number: 2013-US-001864

PATIENT
  Age: 45 Year
  Sex: Female

DRUGS (2)
  1. XYREM ?(500 MILLIGRAM/MILLILITERS, SOLUTION)(SODIUM OXYBATE) [Suspect]
     Indication: NARCOLEPSY
     Route: 048
     Dates: start: 200608, end: 200612
  2. XYREM ?(500 MILLIGRAM/MILLILITERS, SOLUTION)(SODIUM OXYBATE) [Suspect]
     Indication: CATAPLEXY
     Route: 048
     Dates: start: 200608, end: 200612

REACTIONS (6)
  - Spinal fusion surgery [None]
  - Spinal nerve stimulator implantation [None]
  - Sleep apnoea syndrome [None]
  - Myalgia [None]
  - Arthralgia [None]
  - Back pain [None]
